FAERS Safety Report 6531292-0 (Version None)
Quarter: 2010Q1

REPORT INFORMATION
  Report Type: 
  Country: None (occurrence: None)
  Receive Date: 20100108
  Receipt Date: 20091229
  Transmission Date: 20100710
  Serious: Yes (Hospitalization)
  Sender: FDA-Public Use
  Company Number: US-WYE-H12815210

PATIENT
  Age: 9 Day
  Sex: Female

DRUGS (6)
  1. PROTONIX [Suspect]
     Indication: PROPHYLAXIS
     Dosage: 1 MG/KG/DAY
     Route: 042
  2. PROTONIX [Suspect]
     Dosage: 1 MG/KG EVERY 12 HOURS
     Route: 042
  3. RECOMBINANT TISSUE FACTOR PATHWAY INHIBITOR (RTFPI) [Concomitant]
     Indication: NORWOOD PROCEDURE
     Dosage: UNSPECIFIED
  4. PLATELETS [Concomitant]
     Indication: NORWOOD PROCEDURE
     Dosage: 50 ML
  5. HEPARIN [Concomitant]
     Dosage: UNSPECIFIED
  6. MILRINONE [Concomitant]
     Dosage: UNSPECIFIED

REACTIONS (1)
  - THROMBOCYTOPENIA [None]
